FAERS Safety Report 25755772 (Version 1)
Quarter: 2025Q3

REPORT INFORMATION
  Report Type: Spontaneous
  Country: EU (occurrence: EU)
  Receive Date: 20250903
  Receipt Date: 20250903
  Transmission Date: 20251020
  Serious: Yes (Other)
  Sender: KOWA PHARM
  Company Number: EU-KOWA-25EU002160

PATIENT

DRUGS (2)
  1. PITAVASTATIN [Suspect]
     Active Substance: PITAVASTATIN
     Indication: Hyperlipidaemia
  2. EZETIMIBE [Suspect]
     Active Substance: EZETIMIBE
     Indication: Hyperlipidaemia

REACTIONS (3)
  - Inclusion body myositis [Unknown]
  - Myopathy [Unknown]
  - Drug intolerance [Unknown]
